FAERS Safety Report 13035178 (Version 2)
Quarter: 2016Q4

REPORT INFORMATION
  Report Type: Report from Study
  Country: None (occurrence: PT)
  Receive Date: 20161216
  Receipt Date: 20161219
  Transmission Date: 20170207
  Serious: Yes (Death, Other)
  Sender: FDA-Public Use
  Company Number: PT-ABBVIE-16K-130-1811477-00

PATIENT
  Age: 62 Year
  Sex: Female

DRUGS (3)
  1. HUMIRA [Suspect]
     Active Substance: ADALIMUMAB
     Route: 058
     Dates: start: 20161028, end: 20161111
  2. HUMIRA [Suspect]
     Active Substance: ADALIMUMAB
     Dosage: LOADING DOSE 2
     Route: 058
     Dates: start: 20161014, end: 20161014
  3. HUMIRA [Suspect]
     Active Substance: ADALIMUMAB
     Indication: GASTROINTESTINAL DISORDER
     Dosage: LOADING DOSE 1
     Route: 058
     Dates: start: 20160930, end: 20160930

REACTIONS (3)
  - Respiratory tract infection [Recovered/Resolved]
  - Choking [Fatal]
  - Dysphagia [Unknown]

NARRATIVE: CASE EVENT DATE: 2016
